FAERS Safety Report 23989401 (Version 1)
Quarter: 2024Q2

REPORT INFORMATION
  Report Type: Spontaneous
  Country: US (occurrence: US)
  Receive Date: 20240619
  Receipt Date: 20240619
  Transmission Date: 20240716
  Serious: Yes (Hospitalization)
  Sender: FDA-Public Use
  Company Number: US-BAYER-2024A085971

PATIENT
  Age: 26 Year
  Sex: Female

DRUGS (3)
  1. MIRENA [Suspect]
     Active Substance: LEVONORGESTREL
     Indication: Menstrual cycle management
     Dosage: 20?G/DAY
     Route: 015
     Dates: start: 202304
  2. OXCARBAZEPINE [Concomitant]
     Active Substance: OXCARBAZEPINE
     Indication: Mood swings
     Dosage: UNK
     Dates: start: 20240525
  3. PRAZOSIN [Concomitant]
     Active Substance: PRAZOSIN
     Indication: Post-traumatic stress disorder
     Dosage: UNK
     Dates: start: 20240525

REACTIONS (6)
  - Heavy menstrual bleeding [Recovered/Resolved with Sequelae]
  - Heavy menstrual bleeding [Not Recovered/Not Resolved]
  - Dysmenorrhoea [Not Recovered/Not Resolved]
  - Mood swings [Not Recovered/Not Resolved]
  - Intermenstrual bleeding [Not Recovered/Not Resolved]
  - pH body fluid abnormal [Not Recovered/Not Resolved]

NARRATIVE: CASE EVENT DATE: 20230401
